FAERS Safety Report 9733618 (Version 1)
Quarter: 2013Q4

REPORT INFORMATION
  Report Type: Spontaneous
  Country: US (occurrence: US)
  Receive Date: 20131205
  Receipt Date: 20131205
  Transmission Date: 20140711
  Serious: Yes (Other)
  Sender: FDA-Public Use
  Company Number: CHPA2013US017923

PATIENT
  Sex: Male

DRUGS (5)
  1. MAALOX ANTACID/ANTIGAS MAX QDTABS ASST [Suspect]
     Indication: DYSPEPSIA
     Dosage: 1-2 TABLETS PER DAY
     Route: 048
  2. MAALOX ANTACID/ANTIGAS MAX QDTABS ASST [Suspect]
     Indication: FLATULENCE
  3. MAALOX ANTACID/ANTIGAS MAX QDTABS ASST [Suspect]
     Indication: DIARRHOEA
  4. EXCEDRIN EXTRA STRENGTH [Suspect]
     Indication: HEADACHE
     Dosage: 4-6 TABLETS; PRN
     Route: 048
  5. ANTIHYPERTENSIVE DRUGS [Concomitant]
     Indication: HYPERTENSION

REACTIONS (2)
  - Cerebrovascular accident [Recovered/Resolved]
  - Osteoarthritis [Recovered/Resolved]
